FAERS Safety Report 9621403 (Version 1)
Quarter: 2013Q4

REPORT INFORMATION
  Report Type: Spontaneous
  Country: US (occurrence: US)
  Receive Date: 20131015
  Receipt Date: 20131015
  Transmission Date: 20140711
  Serious: No
  Sender: FDA-Public Use
  Company Number: US-PFIZER INC-2013290785

PATIENT
  Age: 13 Year
  Sex: Female

DRUGS (5)
  1. DEPO-PROVERA [Suspect]
     Indication: MENSTRUAL DISCOMFORT
     Dosage: 150 MG, EVERY 10-12 WEEKS
     Route: 030
     Dates: start: 201110
  2. INTUNIV [Concomitant]
     Indication: MENTAL DISORDER
     Dosage: 4 MG, 1X/DAY
  3. ZYPREXA [Concomitant]
     Indication: MENTAL DISORDER
     Dosage: 15 MG, 1X/DAY
  4. LAMOTRIGINE [Concomitant]
     Indication: MENTAL DISORDER
     Dosage: 200 MG, 2X/DAY
  5. SINGULAIR [Concomitant]
     Indication: ASTHMA
     Dosage: 5 MG, 1X/DAY

REACTIONS (3)
  - Off label use [Unknown]
  - Drug ineffective for unapproved indication [Unknown]
  - Prescribed overdose [Unknown]
